FAERS Safety Report 7120639-2 (Version None)
Quarter: 2010Q4

REPORT INFORMATION
  Report Type: 
  Country: None (occurrence: None)
  Receive Date: 20101122
  Receipt Date: 20101122
  Transmission Date: 20110411
  Serious: Yes (Other)
  Sender: FDA-Public Use
  Company Number: None

PATIENT
  Sex: Male
  Weight: 75.2971 kg

DRUGS (3)
  1. ERBITUX [Suspect]
     Indication: HEAD AND NECK CANCER
     Dosage: 510 MG IV
     Route: 042
     Dates: start: 20101118
  2. ERBITUX [Suspect]
  3. ERBITUX [Suspect]

REACTIONS (1)
  - ERYTHEMA [None]
